FAERS Safety Report 21745552 (Version 1)
Quarter: 2022Q4

REPORT INFORMATION
  Report Type: Spontaneous
  Country: US (occurrence: US)
  Receive Date: 20221219
  Receipt Date: 20221219
  Transmission Date: 20230113
  Serious: No
  Sender: FDA-Public Use
  Company Number: US-BoehringerIngelheim-2022-BI-208571

PATIENT
  Age: 68 Year
  Sex: Female

DRUGS (5)
  1. JARDIANCE [Suspect]
     Active Substance: EMPAGLIFLOZIN
     Indication: Product used for unknown indication
  2. TRULICITY [Suspect]
     Active Substance: DULAGLUTIDE
     Indication: Diabetes mellitus
     Dosage: SOLUTION FOR INJECTION IN PRE-FILLED PEN,
     Route: 058
  3. TRULICITY [Suspect]
     Active Substance: DULAGLUTIDE
     Dosage: TRULICITY 1.5MG (DULAGLUTIDE) SOLUTION FOR INJECTION IN PRE-FILLED PEN, 1.5 MG; REGIMEN #2
  4. TRULICITY [Suspect]
     Active Substance: DULAGLUTIDE
     Dosage: PEN (DULAGLUTIDE 1.5 MG PEN DEVICE) PEN, DISPOSABLE
  5. TRULICITY [Suspect]
     Active Substance: DULAGLUTIDE
     Dosage: PEN (DULAGLUTIDE 1.5 MG PEN DEVICE) PEN, DISPOSABLE

REACTIONS (2)
  - Urinary tract infection [Recovered/Resolved]
  - Product dose omission issue [Unknown]
